FAERS Safety Report 19724381 (Version 2)
Quarter: 2021Q3

REPORT INFORMATION
  Report Type: Report from Study
  Country: DE (occurrence: DE)
  Receive Date: 20210819
  Receipt Date: 20210827
  Transmission Date: 20211014
  Serious: Yes (Hospitalization, Other)
  Sender: FDA-Public Use
  Company Number: DE-MYLANLABS-2021M1053024

PATIENT
  Sex: Female

DRUGS (2)
  1. HULIO [Suspect]
     Active Substance: ADALIMUMAB-FKJP
     Indication: PSORIATIC ARTHROPATHY
     Dosage: 40 MILLIGRAM, Q2W (40MG EVERY 2 WEEKS)
     Dates: start: 20190805
  2. METHOTREXATE. [Suspect]
     Active Substance: METHOTREXATE
     Indication: PRODUCT USED FOR UNKNOWN INDICATION
     Dosage: 10 MILLIGRAM, QW (10.00MG/WEEK;)
     Dates: start: 20190128

REACTIONS (2)
  - Fall [Unknown]
  - Spinal fracture [Unknown]

NARRATIVE: CASE EVENT DATE: 20210118
